FAERS Safety Report 13277043 (Version 2)
Quarter: 2017Q4

REPORT INFORMATION
  Report Type: Report from Study
  Country: None (occurrence: ZA)
  Receive Date: 20170228
  Receipt Date: 20171226
  Transmission Date: 20180320
  Serious: Yes (Other)
  Sender: FDA-Public Use
  Company Number: ZA-BAUSCH-BL-2017-004897

PATIENT

DRUGS (1)
  1. DICLOFENAC [Suspect]
     Active Substance: DICLOFENAC
     Indication: PAIN
     Route: 030

REACTIONS (3)
  - Injection site abscess [Unknown]
  - Injection site scar [Unknown]
  - Injection site pain [Unknown]
